FAERS Safety Report 4901503-3 (Version None)
Quarter: 2006Q1

REPORT INFORMATION
  Report Type: 
  Country: None (occurrence: None)
  Receive Date: 20060202
  Receipt Date: 20060202
  Transmission Date: 20060701
  Serious: No
  Sender: FDA-Public Use
  Company Number: None

PATIENT
  Age: 76 Year
  Sex: Male
  Weight: 90.7194 kg

DRUGS (1)
  1. ZICAM COLD REMEDY [Suspect]
     Indication: NASOPHARYNGITIS
     Dates: start: 20030104, end: 20030110

REACTIONS (3)
  - ANOSMIA [None]
  - NASAL DISCOMFORT [None]
  - THERAPEUTIC RESPONSE DELAYED [None]
